FAERS Safety Report 7669017-8 (Version None)
Quarter: 2011Q3

REPORT INFORMATION
  Report Type: 
  Country: None (occurrence: None)
  Receive Date: 20110808
  Receipt Date: 20110801
  Transmission Date: 20111222
  Serious: Yes (Hospitalization)
  Sender: FDA-Public Use
  Company Number: US-BAYER-2011-069449

PATIENT
  Age: 33 Year
  Weight: 104.31 kg

DRUGS (8)
  1. LEVAQUIN [Concomitant]
     Indication: DIVERTICULITIS
     Dosage: UNK
     Route: 042
     Dates: start: 20030409, end: 20030411
  2. FLAGYL [Concomitant]
     Indication: DIVERTICULITIS
     Dosage: UNK
     Route: 042
     Dates: start: 20030409, end: 20030411
  3. ANTIBIOTICS [Concomitant]
     Indication: DIVERTICULITIS
  4. SYNTHROID [Concomitant]
     Indication: HYPOTHYROIDISM
     Dosage: UNK
     Dates: start: 19980101
  5. YASMIN [Suspect]
     Indication: ACNE
     Dosage: UNK
     Dates: start: 20020101, end: 20030101
  6. REGLAN [Concomitant]
     Indication: DIVERTICULITIS
     Dosage: UNK
     Route: 042
     Dates: start: 20030409, end: 20030411
  7. ADVIL LIQUI-GELS [Concomitant]
     Dosage: UNK
     Dates: start: 19900101
  8. YASMIN [Suspect]
     Indication: MENSTRUATION IRREGULAR

REACTIONS (5)
  - ANXIETY [None]
  - CHEST PAIN [None]
  - DYSPNOEA [None]
  - DEPRESSION [None]
  - PULMONARY EMBOLISM [None]
